FAERS Safety Report 14340399 (Version 2)
Quarter: 2018Q1

REPORT INFORMATION
  Report Type: Report from Study
  Country: CO (occurrence: CO)
  Receive Date: 20180101
  Receipt Date: 20180111
  Transmission Date: 20180509
  Serious: Yes (Death, Life-Threatening, Other)
  Sender: FDA-Public Use
  Company Number: CO-AMGEN-COLSL2017192469

PATIENT
  Age: 67 Year
  Sex: Female

DRUGS (1)
  1. VECTIBIX [Suspect]
     Active Substance: PANITUMUMAB
     Indication: COLORECTAL CANCER METASTATIC
     Dosage: 330 MG, Q2WK
     Route: 042
     Dates: start: 20170616, end: 20171207

REACTIONS (1)
  - Death [Fatal]

NARRATIVE: CASE EVENT DATE: 20171223
